FAERS Safety Report 6157628-0 (Version None)
Quarter: 2009Q2

REPORT INFORMATION
  Report Type: 
  Country: None (occurrence: None)
  Receive Date: 20090416
  Receipt Date: 20090414
  Transmission Date: 20091009
  Serious: Yes (Hospitalization)
  Sender: FDA-Public Use
  Company Number: FR-WYE-G03271809

PATIENT
  Sex: Female
  Weight: 16 kg

DRUGS (2)
  1. ADVIL [Suspect]
     Indication: PYREXIA
     Route: 048
     Dates: start: 20090207, end: 20090209
  2. DOLIPRANE [Suspect]
     Indication: PYREXIA
     Route: 048
     Dates: start: 20090207

REACTIONS (11)
  - ABDOMINAL PAIN [None]
  - CONDITION AGGRAVATED [None]
  - FEEDING DISORDER [None]
  - HEADACHE [None]
  - HYPERHIDROSIS [None]
  - INFECTION [None]
  - INFLAMMATION [None]
  - MYCOPLASMA INFECTION [None]
  - PLEURAL EFFUSION [None]
  - PNEUMONIA PNEUMOCOCCAL [None]
  - TACHYCARDIA [None]
